FAERS Safety Report 14611128 (Version 1)
Quarter: 2018Q1

REPORT INFORMATION
  Report Type: Spontaneous
  Country: FI (occurrence: FI)
  Receive Date: 20180308
  Receipt Date: 20180308
  Transmission Date: 20180509
  Serious: Yes (Other)
  Sender: FDA-Public Use
  Company Number: FI-ROCHE-2085813

PATIENT
  Age: 43 Year
  Sex: Female

DRUGS (3)
  1. SODIUM VALPROATE [Suspect]
     Active Substance: VALPROATE SODIUM
     Indication: TEMPORAL LOBE EPILEPSY
     Route: 065
  2. LAMOTRIGINE. [Suspect]
     Active Substance: LAMOTRIGINE
     Indication: TEMPORAL LOBE EPILEPSY
     Route: 065
  3. CLONAZEPAM. [Suspect]
     Active Substance: CLONAZEPAM
     Indication: TEMPORAL LOBE EPILEPSY
     Route: 065

REACTIONS (3)
  - Sleep disorder [Unknown]
  - Obstructive airways disorder [Unknown]
  - Sleep apnoea syndrome [Unknown]
